FAERS Safety Report 6816292-5 (Version None)
Quarter: 2010Q3

REPORT INFORMATION
  Report Type: 
  Country: None (occurrence: None)
  Receive Date: 20100705
  Receipt Date: 20100620
  Transmission Date: 20110219
  Serious: Yes (Hospitalization, Other)
  Sender: FDA-Public Use
  Company Number: PHHY2010DE43304

PATIENT

DRUGS (3)
  1. PROVAS [Suspect]
  2. CITALOPRAM HYDROBROMIDE [Suspect]
  3. LEVOTHYROXINE SODIUM [Suspect]

REACTIONS (1)
  - SUICIDAL IDEATION [None]
